FAERS Safety Report 4290561-8 (Version None)
Quarter: 2004Q1

REPORT INFORMATION
  Report Type: 
  Country: None (occurrence: None)
  Receive Date: 20040211
  Receipt Date: 20020306
  Transmission Date: 20041129
  Serious: Yes (Death, Other)
  Sender: FDA-Public Use
  Company Number: US-BRISTOL-MYERS SQUIBB COMPANY-11760337

PATIENT
  Sex: Male

DRUGS (10)
  1. SERZONE [Suspect]
     Indication: DEPRESSION
     Route: 048
     Dates: start: 19990528, end: 19990712
  2. CYCLOSPORINE [Interacting]
  3. DIABETA [Concomitant]
  4. ASPIRIN [Concomitant]
  5. CELLCEPT [Concomitant]
  6. PRILOSEC [Concomitant]
  7. QUININE SULFATE [Concomitant]
  8. PANCREASE [Concomitant]
  9. GLYBURIDE [Concomitant]
  10. PREDNISONE [Concomitant]

REACTIONS (5)
  - ACUTE MYELOID LEUKAEMIA [None]
  - DRUG INTERACTION [None]
  - HEPATIC FAILURE [None]
  - HEPATORENAL SYNDROME [None]
  - RENAL IMPAIRMENT [None]
